FAERS Safety Report 20854792 (Version 1)
Quarter: 2022Q2

REPORT INFORMATION
  Report Type: Spontaneous
  Country: US (occurrence: US)
  Receive Date: 20220520
  Receipt Date: 20220520
  Transmission Date: 20220721
  Serious: Yes (Hospitalization)
  Sender: FDA-Public Use
  Company Number: US-GW PHARMA-202110USGW04922

PATIENT
  Sex: Female
  Weight: 34.467 kg

DRUGS (2)
  1. EPIDIOLEX [Suspect]
     Active Substance: CANNABIDIOL
     Indication: Lennox-Gastaut syndrome
     Dosage: 19.15 MG/KG/DAY, 330 MILLIGRAM, BID
     Route: 048
     Dates: start: 20190319
  2. EPIDIOLEX [Suspect]
     Active Substance: CANNABIDIOL
     Dosage: 3.3 MILLILITER, BID
     Route: 048
     Dates: start: 20190319

REACTIONS (2)
  - Hospitalisation [Unknown]
  - Emergency care [Unknown]
